FAERS Safety Report 4937064-2 (Version None)
Quarter: 2006Q1

REPORT INFORMATION
  Report Type: 
  Country: None (occurrence: None)
  Receive Date: 20060309
  Receipt Date: 20050105
  Transmission Date: 20060701
  Serious: Yes (Other)
  Sender: FDA-Public Use
  Company Number: US-MERCK-0501USA00511

PATIENT
  Age: 79 Year
  Sex: Female
  Weight: 108 kg

DRUGS (1)
  1. VIOXX [Suspect]
     Indication: ARTHRITIS
     Route: 048
     Dates: start: 20010401, end: 20040901

REACTIONS (2)
  - ARRHYTHMIA [None]
  - CEREBROVASCULAR ACCIDENT [None]
